FAERS Safety Report 5351957-6 (Version None)
Quarter: 2007Q2

REPORT INFORMATION
  Report Type: 
  Country: None (occurrence: None)
  Receive Date: 20070611
  Receipt Date: 20070530
  Transmission Date: 20071010
  Serious: Yes (Other)
  Sender: FDA-Public Use
  Company Number: US-JNJFOC-20070304664

PATIENT
  Sex: Male
  Weight: 50.35 kg

DRUGS (5)
  1. REMICADE [Suspect]
     Route: 042
  2. REMICADE [Suspect]
     Indication: CROHN'S DISEASE
     Route: 042
  3. PROPOXYPHENE HYDROCHLORIDE [Concomitant]
  4. VALIUM [Concomitant]
  5. ACETAMINOPHEN [Concomitant]
     Dosage: PRN

REACTIONS (6)
  - CALCULUS BLADDER [None]
  - CHILLS [None]
  - DRUG HYPERSENSITIVITY [None]
  - HEADACHE [None]
  - PAIN [None]
  - PYREXIA [None]
